FAERS Safety Report 13395352 (Version 4)
Quarter: 2017Q4

REPORT INFORMATION
  Report Type: Spontaneous
  Country: US (occurrence: US)
  Receive Date: 20170403
  Receipt Date: 20171009
  Transmission Date: 20180320
  Serious: Yes (Other)
  Sender: FDA-Public Use
  Company Number: US-PFIZER INC-2017140534

PATIENT
  Age: 58 Year
  Sex: Female
  Weight: 53 kg

DRUGS (3)
  1. IBRANCE [Suspect]
     Active Substance: PALBOCICLIB
     Dosage: 125 MG, CYCLIC (1 CAPSULE BY MOUTH DAILY FOR 21 DAYS ON, 7 DAYS OFF)
     Route: 048
  2. FASLODEX [Concomitant]
     Active Substance: FULVESTRANT
     Dosage: UNK
  3. IBRANCE [Suspect]
     Active Substance: PALBOCICLIB
     Dosage: 100 MG, CYCLIC (TAKE 1 CAPSULE BY MOUTH DAILY FOR 21 DAYS FOLLOWED BY A 7 DAY REST)
     Route: 048
     Dates: start: 201704

REACTIONS (18)
  - Anxiety [Unknown]
  - Decreased appetite [Unknown]
  - Neoplasm progression [Unknown]
  - Fatigue [Unknown]
  - Nasopharyngitis [Unknown]
  - Parosmia [Unknown]
  - Infection [Unknown]
  - Insomnia [Unknown]
  - Flushing [Unknown]
  - Hot flush [Unknown]
  - Oral herpes [Unknown]
  - Pyrexia [Unknown]
  - Fall [Unknown]
  - Stomatitis [Recovered/Resolved]
  - Neutropenia [Unknown]
  - Nausea [Unknown]
  - Abdominal pain upper [Unknown]
  - Skin abrasion [Unknown]
